FAERS Safety Report 8359911-7 (Version None)
Quarter: 2012Q2

REPORT INFORMATION
  Report Type: 
  Country: None (occurrence: None)
  Receive Date: 20120515
  Receipt Date: 20120507
  Transmission Date: 20120825
  Serious: Yes (Hospitalization)
  Sender: FDA-Public Use
  Company Number: US-PFIZER INC-2012112185

PATIENT
  Sex: Male

DRUGS (7)
  1. AMBRISENTAN [Suspect]
     Indication: PULMONARY ARTERIAL HYPERTENSION
     Dosage: 10 MG, UNK
     Route: 048
     Dates: start: 20080421
  2. TYVASO [Suspect]
     Indication: PULMONARY ARTERIAL HYPERTENSION
     Dosage: UNK
     Dates: start: 20100402
  3. REVATIO [Suspect]
     Dosage: UNK
  4. AMBRISENTAN [Suspect]
     Indication: SLEEP APNOEA SYNDROME
  5. AMBRISENTAN [Suspect]
     Indication: CHRONIC OBSTRUCTIVE PULMONARY DISEASE
  6. PLAVIX [Concomitant]
     Dosage: UNK
  7. AMBRISENTAN [Suspect]
     Indication: CARDIAC DISORDER

REACTIONS (2)
  - DYSPNOEA [None]
  - LUNG DISORDER [None]
